FAERS Safety Report 7835657-6 (Version None)
Quarter: 2011Q4

REPORT INFORMATION
  Report Type: 
  Country: None (occurrence: None)
  Receive Date: 20111024
  Receipt Date: 20110727
  Transmission Date: 20120403
  Serious: No
  Sender: FDA-Public Use
  Company Number: US-B.I. PHARMACEUTICALS,INC./RIDGEFIELD-2011-BP-16393BP

PATIENT
  Sex: Female

DRUGS (11)
  1. YEAST CREAM [Concomitant]
     Indication: VULVOVAGINAL MYCOTIC INFECTION
  2. HYDROCHLOROTHIAZIDE [Concomitant]
     Indication: HYPERTENSION
  3. VITAMIN D [Concomitant]
     Indication: ROUTINE HEALTH MAINTENANCE
     Dates: start: 20090101
  4. PROBIOTIC [Concomitant]
     Indication: VULVOVAGINAL MYCOTIC INFECTION
  5. YEAST PILLS [Concomitant]
     Indication: VULVOVAGINAL MYCOTIC INFECTION
  6. LOSARTAN POTASSIUM [Concomitant]
     Indication: HYPERTENSION
  7. PRADAXA [Suspect]
     Indication: ATRIAL FIBRILLATION
     Dosage: 150 MG
     Route: 048
     Dates: start: 20110401
  8. FIBER [Concomitant]
  9. AMIODARONE HCL [Concomitant]
     Indication: ATRIAL FIBRILLATION
  10. FLORAMORE [Concomitant]
  11. CREON [Concomitant]
     Indication: PANCREATIC ATROPHY
     Dates: start: 20110601

REACTIONS (3)
  - EAR LOBE INFECTION [None]
  - VULVOVAGINAL MYCOTIC INFECTION [None]
  - EYE HAEMORRHAGE [None]
